FAERS Safety Report 13122442 (Version 2)
Quarter: 2017Q4

REPORT INFORMATION
  Report Type: Spontaneous
  Country: ES (occurrence: ES)
  Receive Date: 20170117
  Receipt Date: 20171103
  Transmission Date: 20180320
  Serious: Yes (Other)
  Sender: FDA-Public Use
  Company Number: ES-JNJFOC-20170109926

PATIENT

DRUGS (5)
  1. INFLIXIMAB, RECOMBINANT [Suspect]
     Active Substance: INFLIXIMAB
     Indication: ULCERATIVE KERATITIS
     Dosage: 3-5 MG/KG EVERY 4 TO 6 WEEKS
     Route: 042
  2. TOCILIZUMAB. [Suspect]
     Active Substance: TOCILIZUMAB
     Indication: ULCERATIVE KERATITIS
     Route: 065
  3. RITUXIMAB. [Suspect]
     Active Substance: RITUXIMAB
     Indication: ULCERATIVE KERATITIS
     Dosage: 1-2 G EVERY 6 OR 12 MONTHS
     Route: 065
  4. ETANERCEPT [Suspect]
     Active Substance: ETANERCEPT
     Indication: ULCERATIVE KERATITIS
     Route: 065
  5. ADALIMUMAB [Suspect]
     Active Substance: ADALIMUMAB
     Indication: ULCERATIVE KERATITIS
     Dosage: EVERY 1-2 WEEKS
     Route: 058

REACTIONS (2)
  - Pulmonary tuberculosis [Unknown]
  - Supraventricular tachycardia [Unknown]
